FAERS Safety Report 13659314 (Version 1)
Quarter: 2017Q2

REPORT INFORMATION
  Report Type: Spontaneous
  Country: CH (occurrence: CH)
  Receive Date: 20170616
  Receipt Date: 20170616
  Transmission Date: 20170830
  Serious: Yes (Hospitalization, Other)
  Sender: FDA-Public Use
  Company Number: CH-VIIV HEALTHCARE LIMITED-CH2017091014

PATIENT
  Age: 56 Year
  Sex: Male
  Weight: 95.7 kg

DRUGS (9)
  1. COMBIVIR [Suspect]
     Active Substance: LAMIVUDINE\ZIDOVUDINE
     Indication: HIV INFECTION
     Dosage: 1 DF, BID
     Route: 048
     Dates: end: 20170515
  2. CEDUR RETARD [Suspect]
     Active Substance: BEZAFIBRATE
     Indication: CHRONIC KIDNEY DISEASE
     Dosage: 400 MG, QD
     Route: 048
     Dates: end: 20170515
  3. COMILORID [Concomitant]
     Active Substance: HYDROCHLOROTHIAZIDE
     Indication: HYPERTENSION
  4. NEXIUM [Concomitant]
     Active Substance: ESOMEPRAZOLE MAGNESIUM
     Dosage: 40 MG, QD
     Route: 048
  5. PREZISTA [Suspect]
     Active Substance: DARUNAVIR ETHANOLATE
     Indication: HIV INFECTION
     Dosage: 600 MG, BID
     Route: 048
     Dates: end: 20170515
  6. CEDUR RETARD [Suspect]
     Active Substance: BEZAFIBRATE
     Indication: HYPERLIPIDAEMIA
  7. CIBACEN [Concomitant]
     Active Substance: BENAZEPRIL HYDROCHLORIDE
     Dosage: 10 MG, QD
     Route: 048
     Dates: end: 20170515
  8. ASPIRIN CARDIO [Concomitant]
     Active Substance: ASPIRIN
     Dosage: 100 MG, QD
     Route: 048
  9. COMILORID [Concomitant]
     Active Substance: HYDROCHLOROTHIAZIDE
     Indication: OBESITY
     Dosage: 1 DF, QD
     Route: 048
     Dates: end: 20170515

REACTIONS (3)
  - Acute kidney injury [Recovering/Resolving]
  - Hypertriglyceridaemia [Recovering/Resolving]
  - Rhabdomyolysis [Recovering/Resolving]

NARRATIVE: CASE EVENT DATE: 20170515
